FAERS Safety Report 13801664 (Version 2)
Quarter: 2017Q4

REPORT INFORMATION
  Report Type: Spontaneous
  Country: US (occurrence: US)
  Receive Date: 20170727
  Receipt Date: 20171117
  Transmission Date: 20180320
  Serious: Yes (Other)
  Sender: FDA-Public Use
  Company Number: US-BRISTOL-MYERS SQUIBB COMPANY-BMS-2017-064392

PATIENT
  Age: 53 Year
  Sex: Male

DRUGS (1)
  1. REYATAZ [Suspect]
     Active Substance: ATAZANAVIR SULFATE
     Indication: ANTIRETROVIRAL THERAPY
     Dosage: 300 MG, QD
     Route: 065

REACTIONS (3)
  - Crystal nephropathy [Unknown]
  - Acute kidney injury [Recovering/Resolving]
  - Dialysis [Recovered/Resolved]
